FAERS Safety Report 5639773-9 (Version None)
Quarter: 2008Q1

REPORT INFORMATION
  Report Type: 
  Country: None (occurrence: None)
  Receive Date: 20080226
  Receipt Date: 20080226
  Transmission Date: 20080703
  Serious: Yes (Hospitalization)
  Sender: FDA-Public Use
  Company Number: None

PATIENT
  Age: 75 Year
  Sex: Female
  Weight: 56.9 kg

DRUGS (2)
  1. POTASSIUM CHLORIDE [Suspect]
     Indication: BLOOD POTASSIUM DECREASED
     Dosage: 40MEQ 1X OVER 4 HOURS IV
     Route: 042
     Dates: start: 20071221, end: 20071222
  2. MAGNESIUM SULFATE [Suspect]
     Indication: BLOOD MAGNESIUM DECREASED
     Dosage: 2GM 1X OVER 1 HR IV
     Route: 042
     Dates: start: 20071221, end: 20071222

REACTIONS (1)
  - MEDICATION ERROR [None]
